FAERS Safety Report 23332198 (Version 2)
Quarter: 2024Q2

REPORT INFORMATION
  Report Type: Spontaneous
  Country: DE (occurrence: DE)
  Receive Date: 20231222
  Receipt Date: 20240511
  Transmission Date: 20240716
  Serious: Yes (Other)
  Sender: FDA-Public Use
  Company Number: DE-AstraZeneca-CH-00521059A

PATIENT

DRUGS (2)
  1. STRENSIQ [Suspect]
     Active Substance: ASFOTASE ALFA
     Indication: Product used for unknown indication
     Dosage: UNK
     Route: 065
  2. CERTOPARIN SODIUM [Concomitant]
     Active Substance: CERTOPARIN SODIUM
     Indication: Product used for unknown indication
     Dosage: UNK
     Route: 065

REACTIONS (5)
  - Angina pectoris [Unknown]
  - Ocular icterus [Unknown]
  - Faeces pale [Unknown]
  - Freezing phenomenon [Unknown]
  - Headache [Unknown]
